FAERS Safety Report 13122517 (Version 1)
Quarter: 2017Q1

REPORT INFORMATION
  Report Type: Spontaneous
  Country: US (occurrence: US)
  Receive Date: 20170117
  Receipt Date: 20170117
  Transmission Date: 20170428
  Serious: No
  Sender: FDA-Public Use
  Company Number: US-TEVA-729320USA

PATIENT
  Sex: Female

DRUGS (14)
  1. COPAXONE [Suspect]
     Active Substance: GLATIRAMER ACETATE
     Indication: MULTIPLE SCLEROSIS
     Route: 058
     Dates: start: 20140709
  2. LORAZEPAM. [Concomitant]
     Active Substance: LORAZEPAM
  3. ZETIA [Concomitant]
     Active Substance: EZETIMIBE
  4. DULOXETINE. [Concomitant]
     Active Substance: DULOXETINE
  5. NYSTATIN. [Concomitant]
     Active Substance: NYSTATIN
  6. BENAZEPRIL [Concomitant]
     Active Substance: BENAZEPRIL HYDROCHLORIDE
  7. HYDROCODONE [Concomitant]
     Active Substance: HYDROCODONE
  8. BACLOFEN. [Concomitant]
     Active Substance: BACLOFEN
  9. AZELASTINE [Concomitant]
     Active Substance: AZELASTINE
  10. LISINOPRIL. [Concomitant]
     Active Substance: LISINOPRIL
  11. AMANTADINE [Concomitant]
     Active Substance: AMANTADINE
  12. VIIBRYD [Concomitant]
     Active Substance: VILAZODONE HYDROCHLORIDE
  13. GABAPENTIN. [Concomitant]
     Active Substance: GABAPENTIN
  14. FLUCONAZOLE. [Concomitant]
     Active Substance: FLUCONAZOLE

REACTIONS (3)
  - Injection site reaction [Unknown]
  - Gait disturbance [Unknown]
  - Pain [Unknown]
